FAERS Safety Report 9095623 (Version 1)
Quarter: 2013Q1

REPORT INFORMATION
  Report Type: Spontaneous
  Country: US (occurrence: None)
  Receive Date: 20130122
  Receipt Date: 20130122
  Transmission Date: 20140127
  Serious: No
  Sender: FDA-Public Use
  Company Number: 2013-00017

PATIENT
  Age: 63 Year
  Sex: Female
  Weight: 56.7 kg

DRUGS (1)
  1. ZICAM INTENSE SINUS RELIEF NASAL GEL [Suspect]
     Dosage: 1 SPRAY EACH NOSTRIL TWICE DAILY
     Dates: start: 20130102, end: 20130104

REACTIONS (3)
  - Anosmia [None]
  - Sinusitis [None]
  - Ear infection [None]
